FAERS Safety Report 8359228-0 (Version None)
Quarter: 2012Q1

REPORT INFORMATION
  Report Type: 
  Country: None (occurrence: None)
  Receive Date: 20111004
  Receipt Date: 20110617
  Transmission Date: 20120608
  Serious: No
  Sender: FDA-Public Use
  Company Number: 2011IP000110

PATIENT
  Age: 44 Year
  Sex: Female

DRUGS (2)
  1. BEPREVE [Suspect]
     Indication: DRY EYE
     Dosage: 1 GTT; BID; OPH
     Route: 047
     Dates: start: 20110526, end: 20110617
  2. BEPREVE [Suspect]
     Indication: OCULAR HYPERAEMIA
     Dosage: 1 GTT; BID; OPH
     Route: 047
     Dates: start: 20110526, end: 20110617

REACTIONS (1)
  - PRODUCT TASTE ABNORMAL [None]
